FAERS Safety Report 25202054 (Version 1)
Quarter: 2025Q2

REPORT INFORMATION
  Report Type: Spontaneous
  Country: AU (occurrence: AU)
  Receive Date: 20250416
  Receipt Date: 20250416
  Transmission Date: 20250716
  Serious: Yes (Life-Threatening, Hospitalization, Other)
  Sender: RANBAXY
  Company Number: AU-SUN PHARMACEUTICAL INDUSTRIES LTD-2025R1-503048

PATIENT
  Age: 76 Year
  Sex: Male

DRUGS (1)
  1. OXYCODONE [Suspect]
     Active Substance: OXYCODONE
     Indication: Pain
     Route: 065

REACTIONS (2)
  - Anaphylactic reaction [Unknown]
  - Type IV hypersensitivity reaction [Unknown]
